FAERS Safety Report 6073127-9 (Version None)
Quarter: 2009Q1

REPORT INFORMATION
  Report Type: 
  Country: None (occurrence: None)
  Receive Date: 20090211
  Receipt Date: 20090130
  Transmission Date: 20090719
  Serious: Yes (Other)
  Sender: FDA-Public Use
  Company Number: US-JNJFOC-20090107455

PATIENT
  Sex: Female
  Weight: 50.8 kg

DRUGS (7)
  1. REMICADE [Suspect]
     Route: 042
  2. REMICADE [Suspect]
     Indication: CROHN'S DISEASE
     Dosage: 8 DOSES
     Route: 042
  3. FOLIC ACID [Concomitant]
  4. VITAMIN B-12 [Concomitant]
  5. MERCAPTOPURINE [Concomitant]
     Indication: CROHN'S DISEASE
  6. VITAMIN D AND CALCIUM [Concomitant]
  7. FOSAMAX [Concomitant]

REACTIONS (5)
  - ACTINIC KERATOSIS [None]
  - CONTUSION [None]
  - HAEMORRHAGE [None]
  - NEPHROLITHIASIS [None]
  - SQUAMOUS CELL CARCINOMA [None]
